FAERS Safety Report 5358901-6 (Version None)
Quarter: 2007Q2

REPORT INFORMATION
  Report Type: 
  Country: None (occurrence: None)
  Receive Date: 20070615
  Receipt Date: 20070613
  Transmission Date: 20071010
  Serious: Yes (Other)
  Sender: FDA-Public Use
  Company Number: A0656643A

PATIENT
  Sex: Female

DRUGS (1)
  1. AVANDIA [Suspect]
     Indication: DRUG USE FOR UNKNOWN INDICATION
     Route: 048
     Dates: start: 20060101, end: 20070101

REACTIONS (5)
  - DRUG TOXICITY [None]
  - FLUID RETENTION [None]
  - PRURITUS [None]
  - RENAL FAILURE [None]
  - URTICARIA [None]
